FAERS Safety Report 8888701 (Version 2)
Quarter: 2014Q2

REPORT INFORMATION
  Report Type: Report from Study
  Country: US (occurrence: US)
  Receive Date: 20121106
  Receipt Date: 20130930
  Transmission Date: 20141212
  Serious: Yes (Hospitalization)
  Sender: FDA-Public Use
  Company Number: US-009507513-1209USA007137

PATIENT
  Age: 33 Year
  Sex: Female
  Weight: 106 kg

DRUGS (19)
  1. SUGAMMADEX SODIUM [Suspect]
     Indication: NEUROMUSCULAR BLOCKADE REVERSAL
     Dosage: 430 MG, ONCE
     Route: 042
     Dates: start: 20120911, end: 20120911
  2. GABAPENTIN [Concomitant]
     Indication: INTERVERTEBRAL DISC DEGENERATION
     Dosage: 900 MG, BID
     Route: 048
     Dates: start: 2011
  3. DESFLURANE [Concomitant]
     Indication: ANAESTHESIA PROCEDURE
     Dosage: 1.1-7.2%, PRN
     Route: 055
     Dates: start: 20120911, end: 20120911
  4. CEFAZOLIN [Concomitant]
     Indication: INFECTION PROPHYLAXIS
     Dosage: 2 G, ONCE
     Route: 042
     Dates: start: 20120911, end: 20120911
  5. METOPROLOL [Concomitant]
     Indication: HYPERTENSION
     Dosage: 4 MG, BID
     Route: 042
     Dates: start: 20120911, end: 20120911
  6. KETAMINE HYDROCHLORIDE [Concomitant]
     Indication: ANAESTHESIA PROCEDURE
     Dosage: 74.2 MG, PRN
     Route: 042
     Dates: start: 20120911, end: 20120911
  7. KETAMINE HYDROCHLORIDE [Concomitant]
     Dosage: 50 MG, ONCE
     Route: 042
     Dates: start: 20120911, end: 20120911
  8. SUCCINYLCHOLINE CHLORIDE [Concomitant]
     Indication: ANAESTHESIA PROCEDURE
     Dosage: 80 MG, ONCE
     Route: 042
     Dates: start: 20120911, end: 20120911
  9. HALOPERIDOL [Concomitant]
     Indication: ANAESTHESIA PROCEDURE
     Dosage: 1 MG, ONCE
     Route: 042
     Dates: start: 20120911, end: 20120911
  10. ONDANSETRON [Concomitant]
     Indication: ANAESTHESIA PROCEDURE
     Dosage: 4 MG, ONCE
     Route: 042
     Dates: start: 20120911, end: 20120911
  11. MIDAZOLAM [Concomitant]
     Indication: ANAESTHESIA PROCEDURE
     Dosage: 2 MG, ONCE
     Route: 042
     Dates: start: 20120911, end: 20120911
  12. PROPOFOL [Concomitant]
     Indication: ANAESTHESIA PROCEDURE
     Dosage: 270 MG, ONCE
     Route: 042
     Dates: start: 20120911, end: 20120911
  13. HYDROMORPHONE [Concomitant]
     Indication: ANAESTHESIA PROCEDURE
     Dosage: 1.5 MG, BID
     Route: 042
     Dates: start: 20120911, end: 20120911
  14. HYDROMORPHONE [Concomitant]
     Dosage: UNK UNK, PRN
     Route: 042
     Dates: start: 20120911, end: 20120911
  15. FAMOTIDINE [Concomitant]
     Indication: PROPHYLAXIS AGAINST GASTROINTESTINAL ULCER
     Dosage: 20 MG, BID
     Route: 042
     Dates: start: 20120911, end: 20120915
  16. ZOFRAN [Concomitant]
     Indication: PROPHYLAXIS AGAINST GASTROINTESTINAL ULCER
     Dosage: 4 MG, ONCE
     Route: 042
     Dates: start: 20120911, end: 20120911
  17. METOCLOPRAMIDE [Concomitant]
     Indication: PROPHYLAXIS OF NAUSEA AND VOMITING
     Dosage: 10 MG, Q6H
     Route: 042
     Dates: start: 20120911, end: 20120915
  18. OXYCODONE [Concomitant]
     Indication: PAIN PROPHYLAXIS
     Dosage: 5-10 MG
     Route: 048
     Dates: start: 20120912
  19. OMEPRAZOLE [Concomitant]
     Indication: PROPHYLAXIS AGAINST GASTROINTESTINAL ULCER
     Dosage: 20 MG, QD
     Route: 048
     Dates: start: 20120915

REACTIONS (1)
  - Post procedural haemorrhage [Recovered/Resolved]
